FAERS Safety Report 22010285 (Version 1)
Quarter: 2023Q1

REPORT INFORMATION
  Report Type: Spontaneous
  Country: FI (occurrence: FI)
  Receive Date: 20230220
  Receipt Date: 20230220
  Transmission Date: 20230417
  Serious: Yes (Hospitalization)
  Sender: FDA-Public Use
  Company Number: None

PATIENT
  Sex: Female

DRUGS (1)
  1. ACLASTA [Suspect]
     Active Substance: ZOLEDRONIC ACID
     Indication: Osteoporosis
     Dosage: 1 DOSAGE FORM (5 MG X 1)
     Route: 042
     Dates: start: 20230111, end: 20230111

REACTIONS (11)
  - Vasculitis [Recovering/Resolving]
  - Hepatic enzyme increased [Recovering/Resolving]
  - Glucocorticoid deficiency [Recovering/Resolving]
  - Myositis [Recovering/Resolving]
  - Anaphylactoid reaction [Recovering/Resolving]
  - Myalgia [Recovering/Resolving]
  - Hypocalcaemia [Recovering/Resolving]
  - C-reactive protein increased [Recovering/Resolving]
  - Blood creatinine increased [Recovering/Resolving]
  - Pyrexia [Recovering/Resolving]
  - Asthenia [Recovering/Resolving]
